FAERS Safety Report 10947992 (Version 1)
Quarter: 2015Q1

REPORT INFORMATION
  Report Type: Spontaneous
  Country: US (occurrence: US)
  Receive Date: 20150324
  Receipt Date: 20150324
  Transmission Date: 20150721
  Serious: Yes (Hospitalization)
  Sender: FDA-Public Use
  Company Number: US-JNJFOC-20150308697

PATIENT
  Age: 9 Month
  Sex: Male
  Weight: 9.07 kg

DRUGS (2)
  1. INFANTS TYLENOL [Suspect]
     Active Substance: ACETAMINOPHEN
     Route: 048
  2. INFANTS TYLENOL [Suspect]
     Active Substance: ACETAMINOPHEN
     Indication: PYREXIA
     Route: 048
     Dates: start: 20150228, end: 20150303

REACTIONS (3)
  - Drug ineffective [Recovered/Resolved]
  - Product quality issue [None]
  - Product formulation issue [Unknown]

NARRATIVE: CASE EVENT DATE: 20150228
